FAERS Safety Report 7694193-0 (Version None)
Quarter: 2011Q3

REPORT INFORMATION
  Report Type: 
  Country: None (occurrence: None)
  Receive Date: 20110819
  Receipt Date: 20110818
  Transmission Date: 20111222
  Serious: Yes (Other)
  Sender: FDA-Public Use
  Company Number: JP-PFIZER INC-2011191058

PATIENT
  Age: 86 Year
  Sex: Female

DRUGS (3)
  1. LYRICA [Suspect]
     Dosage: 25 MG/DAY
     Route: 048
     Dates: start: 20110811, end: 20110815
  2. NEUROTROPIN [Concomitant]
     Dosage: UNK
     Dates: end: 20110815
  3. CAPISTEN [Concomitant]
     Dosage: UNK
     Dates: end: 20110815

REACTIONS (2)
  - INTERSTITIAL LUNG DISEASE [None]
  - RASH [None]
